FAERS Safety Report 7517114-X (Version None)
Quarter: 2011Q2

REPORT INFORMATION
  Report Type: 
  Country: None (occurrence: None)
  Receive Date: 20110601
  Receipt Date: 20110525
  Transmission Date: 20111010
  Serious: Yes (Hospitalization, Other)
  Sender: FDA-Public Use
  Company Number: US-ABBOTT-11P-163-0712801-00

PATIENT
  Sex: Female
  Weight: 60.382 kg

DRUGS (4)
  1. TRAMADOL HCL [Concomitant]
     Indication: PRODUCT USED FOR UNKNOWN INDICATION
  2. SEASONIQUE [Concomitant]
     Indication: PRODUCT USED FOR UNKNOWN INDICATION
  3. HUMIRA [Suspect]
     Indication: CROHN'S DISEASE
     Dates: start: 20110302, end: 20110302
  4. HUMIRA [Suspect]
     Dates: start: 20110316, end: 20110501

REACTIONS (8)
  - GASTRIC PERFORATION [None]
  - ABDOMINAL PAIN LOWER [None]
  - INJECTION SITE REACTION [None]
  - CATHETER PLACEMENT [None]
  - DIARRHOEA [None]
  - MALAISE [None]
  - ABDOMINAL PAIN [None]
  - DECREASED APPETITE [None]
